FAERS Safety Report 6316764-6 (Version None)
Quarter: 2009Q3

REPORT INFORMATION
  Report Type: 
  Country: None (occurrence: None)
  Receive Date: 20090820
  Receipt Date: 20090810
  Transmission Date: 20100115
  Serious: Yes (Hospitalization)
  Sender: FDA-Public Use
  Company Number: FR-ABBOTT-09P-056-0590436-00

PATIENT
  Sex: Male

DRUGS (6)
  1. KALETRA [Suspect]
     Indication: HIV INFECTION
     Route: 048
     Dates: start: 20090710, end: 20090718
  2. NORVIR [Suspect]
     Indication: HIV INFECTION
     Route: 048
     Dates: start: 20090608, end: 20090710
  3. TRUVADA [Suspect]
     Indication: HIV INFECTION
     Dates: start: 20070101, end: 20090718
  4. PREZISTA [Suspect]
     Indication: HIV INFECTION
     Dosage: 3 DOSAGE FORMS DAILY
     Route: 048
     Dates: start: 20090608, end: 20090710
  5. LAROXYL [Concomitant]
     Indication: DRUG USE FOR UNKNOWN INDICATION
     Route: 048
  6. RIVOTRIL [Concomitant]
     Indication: DRUG USE FOR UNKNOWN INDICATION

REACTIONS (2)
  - CONDITION AGGRAVATED [None]
  - JAUNDICE CHOLESTATIC [None]
